FAERS Safety Report 5948644-X (Version None)
Quarter: 2008Q4

REPORT INFORMATION
  Report Type: 
  Country: None (occurrence: None)
  Receive Date: 20081111
  Receipt Date: 20081106
  Transmission Date: 20090506
  Serious: Yes (Death, Hospitalization)
  Sender: FDA-Public Use
  Company Number: ES-JNJFOC-20081101566

PATIENT
  Age: 79 Year
  Sex: Male

DRUGS (1)
  1. LEVOFLOXACIN [Suspect]
     Indication: PNEUMONIA
     Route: 042

REACTIONS (6)
  - DEATH [None]
  - DRUG RESISTANCE [None]
  - HYPOTENSION [None]
  - PNEUMOCOCCAL INFECTION [None]
  - PYREXIA [None]
  - TACHYCARDIA [None]
